FAERS Safety Report 15916079 (Version 1)
Quarter: 2019Q1

REPORT INFORMATION
  Report Type: Spontaneous
  Country: ES (occurrence: ES)
  Receive Date: 20190204
  Receipt Date: 20190204
  Transmission Date: 20190417
  Serious: Yes (Other)
  Sender: FDA-Public Use
  Company Number: PHHY2019ES015073

PATIENT
  Age: 5 Year
  Sex: Female

DRUGS (2)
  1. AMOXICILLIN SODIUM+POTASSIUM CLAVULANATE [Suspect]
     Active Substance: AMOXICILLIN\CLAVULANATE POTASSIUM
     Dosage: UNK (DOSE GIVEN DURING HOSPITAL PROVOCATION TEST)
     Route: 065
  2. AMOXICILLIN SODIUM+POTASSIUM CLAVULANATE [Suspect]
     Active Substance: AMOXICILLIN\CLAVULANATE POTASSIUM
     Indication: DRUG PROVOCATION TEST
     Dosage: (DOSE GIVEN DURING EXTENDED HOME PROVOCATION TEST)
     Route: 065

REACTIONS (2)
  - Respiratory tract infection [Unknown]
  - Rash maculo-papular [Unknown]
